FAERS Safety Report 24590091 (Version 1)
Quarter: 2024Q4

REPORT INFORMATION
  Report Type: Spontaneous
  Country: US (occurrence: None)
  Receive Date: 20241106
  Receipt Date: 20241106
  Transmission Date: 20250114
  Serious: Yes (Hospitalization, Other)
  Sender: Public
  Company Number: None

PATIENT
  Age: 70 Year
  Sex: Female
  Weight: 63.9 kg

DRUGS (3)
  1. ISOVUE 370 [Suspect]
     Active Substance: IOPAMIDOL
  2. MECLIZINE [Concomitant]
     Active Substance: MECLIZINE HYDROCHLORIDE
  3. ATENOLOL [Concomitant]
     Active Substance: ATENOLOL

REACTIONS (5)
  - Hypertension [None]
  - Asthenia [None]
  - Balance disorder [None]
  - Incoherent [None]
  - Contrast media reaction [None]

NARRATIVE: CASE EVENT DATE: 20240812
